FAERS Safety Report 4552060-5 (Version None)
Quarter: 2004Q4

REPORT INFORMATION
  Report Type: 
  Country: None (occurrence: None)
  Receive Date: 20041217
  Receipt Date: 20041012
  Transmission Date: 20050328
  Serious: No
  Sender: FDA-Public Use
  Company Number: 2004-BP-09857BP

PATIENT
  Age: 63 Year
  Sex: Female

DRUGS (9)
  1. SPIRIVA [Suspect]
     Indication: CHRONIC OBSTRUCTIVE AIRWAYS DISEASE
     Dosage: 18 MCG (18 MCG, 1 CAP OD); IH
     Route: 055
     Dates: start: 20040826
  2. ADVAIR (SERETIDE MITE) [Concomitant]
  3. COMBIVENT [Concomitant]
  4. EVISTA [Concomitant]
  5. CALCIUM + D (VITACAL) [Concomitant]
  6. VITAMIN E [Concomitant]
  7. PREVACID [Concomitant]
  8. NEURONTIN [Concomitant]
  9. DAYPRO [Concomitant]

REACTIONS (2)
  - COUGH [None]
  - DRUG INEFFECTIVE [None]
